FAERS Safety Report 8450781 (Version 3)
Quarter: 2013Q2

REPORT INFORMATION
  Report Type: Spontaneous
  Country: US (occurrence: None)
  Receive Date: 20120229
  Receipt Date: 20120523
  Transmission Date: 20140414
  Serious: Yes (Other)
  Sender: FDA-Public Use
  Company Number: US-2011-10302

PATIENT
  Age: 47 Year
  Sex: Female

DRUGS (10)
  1. SAMSCA [Suspect]
     Indication: HYPONATRAEMIA
     Route: 048
     Dates: start: 20110421, end: 20110502
  2. SAMSCA [Suspect]
     Indication: OEDEMA
     Route: 048
     Dates: start: 20110421, end: 20110502
  3. ALDACTONE (POTASSIUM CANRENOATE) [Concomitant]
  4. DEMEX (PROPYPHENAZONE) [Concomitant]
  5. SINGULAIR [Concomitant]
  6. ZYRTEC [Concomitant]
  7. CLARITIN [Concomitant]
  8. MIRALAX [Concomitant]
  9. MULTI-VITAMIN [Concomitant]
  10. CHLORTHALIDONE [Concomitant]

REACTIONS (3)
  - HAIR TEXTURE ABNORMAL [None]
  - ABDOMINAL DISTENSION [None]
  - FAECES DISCOLOURED [None]
